FAERS Safety Report 10043315 (Version 1)
Quarter: 2014Q1

REPORT INFORMATION
  Report Type: Spontaneous
  Country: US (occurrence: None)
  Receive Date: 20140327
  Receipt Date: 20140327
  Transmission Date: 20141002
  Serious: Yes (Disabling, Other)
  Sender: FDA-Public Use
  Company Number: None

PATIENT
  Age: 62 Year
  Sex: Female
  Weight: 61.24 kg

DRUGS (1)
  1. BOTOX [Suspect]
     Indication: SKIN COSMETIC PROCEDURE
     Dosage: 2 SYRINGS GIVEN INTO/UNDER THE SKIN
     Dates: start: 20140220

REACTIONS (6)
  - Dry eye [None]
  - Blister [None]
  - Dyspnoea [None]
  - Palpitations [None]
  - Dizziness [None]
  - Neck pain [None]
